FAERS Safety Report 15145066 (Version 1)
Quarter: 2018Q3

REPORT INFORMATION
  Report Type: Report from Study
  Country: US (occurrence: US)
  Receive Date: 20180713
  Receipt Date: 20180713
  Transmission Date: 20181010
  Serious: Yes (Death)
  Sender: FDA-Public Use
  Company Number: US-ACTELION-A-NJ2018-169359

PATIENT
  Age: 70 Year
  Sex: Male

DRUGS (8)
  1. PROVIGIL [Concomitant]
     Active Substance: MODAFINIL
  2. UROXATRAL [Concomitant]
     Active Substance: ALFUZOSIN HYDROCHLORIDE
  3. UPTRAVI [Suspect]
     Active Substance: SELEXIPAG
     Indication: PULMONARY HYPERTENSION
     Route: 048
  4. AVODART [Concomitant]
     Active Substance: DUTASTERIDE
  5. NAPROXEN. [Concomitant]
     Active Substance: NAPROXEN
  6. OPSUMIT [Suspect]
     Active Substance: MACITENTAN
     Indication: PULMONARY HYPERTENSION
     Dosage: 10 MG, UNK
     Route: 048
  7. TRAMADOL. [Concomitant]
     Active Substance: TRAMADOL
  8. TRAVATAN Z [Concomitant]
     Active Substance: TRAVOPROST

REACTIONS (2)
  - Oxygen therapy [Unknown]
  - Death [Fatal]

NARRATIVE: CASE EVENT DATE: 20180617
